FAERS Safety Report 4696168-2 (Version None)
Quarter: 2005Q2

REPORT INFORMATION
  Report Type: 
  Country: None (occurrence: None)
  Receive Date: 20050620
  Receipt Date: 20050609
  Transmission Date: 20051028
  Serious: Yes (Hospitalization)
  Sender: FDA-Public Use
  Company Number: 2005086714

PATIENT
  Age: 35 Year
  Sex: Male

DRUGS (8)
  1. ATARAX (TABLET)  (HYDROXYXZINE HYDROCHLORIDE) [Suspect]
     Indication: ILL-DEFINED DISORDER
     Dosage: ORAL
     Route: 048
     Dates: start: 20041013, end: 20041013
  2. KETAMINE HCL [Suspect]
     Indication: ILL-DEFINED DISORDER
     Dosage: INTRAVENOUS
     Route: 042
     Dates: start: 20041013, end: 20041013
  3. LIDOCAINE HYDROCHLORIDE [Suspect]
     Indication: ILL-DEFINED DISORDER
     Dosage: INHALATION
     Route: 055
  4. NAROPIN [Suspect]
     Indication: ILL-DEFINED DISORDER
     Dates: start: 20041013, end: 20041013
  5. CEFAZOLIN SODIUM [Suspect]
     Indication: ILL-DEFINED DISORDER
     Dosage: ORAL
     Route: 048
     Dates: start: 20041013, end: 20041013
  6. PROPOFOL [Suspect]
     Indication: ILL-DEFINED DISORDER
     Dosage: INTRAVENOUS
     Route: 042
     Dates: start: 20041013, end: 20041013
  7. SUFENTANIL CITRATE [Concomitant]
  8. BETADINE ^INTRA PHARMA^ (PROVIDONE-IODINE) [Concomitant]

REACTIONS (7)
  - ANAPHYLACTIC SHOCK [None]
  - DERMATITIS EXFOLIATIVE [None]
  - ERYTHEMA [None]
  - FACE OEDEMA [None]
  - SKIN REACTION [None]
  - TACHYCARDIA [None]
  - TRYPTASE INCREASED [None]
